FAERS Safety Report 6960415-4 (Version None)
Quarter: 2010Q3

REPORT INFORMATION
  Report Type: 
  Country: None (occurrence: None)
  Receive Date: 20100823
  Receipt Date: 20100713
  Transmission Date: 20110219
  Serious: No
  Sender: FDA-Public Use
  Company Number: 015434

PATIENT
  Sex: Female

DRUGS (1)
  1. CIMZIA [Suspect]
     Dosage: (RECEIVED 3 DOSES SUBCUTANEOUS)
     Route: 058
     Dates: start: 20090801

REACTIONS (5)
  - DYSPNOEA [None]
  - FLUSHING [None]
  - OEDEMA PERIPHERAL [None]
  - RESPIRATORY RATE DECREASED [None]
  - SWELLING FACE [None]
